FAERS Safety Report 15186644 (Version 2)
Quarter: 2019Q1

REPORT INFORMATION
  Report Type: Report from Study
  Country: US (occurrence: US)
  Receive Date: 20180723
  Receipt Date: 20190130
  Transmission Date: 20190417
  Serious: No
  Sender: FDA-Public Use
  Company Number: US-EXELIXIS-CABO-17011895

PATIENT
  Age: 85 Year
  Sex: Male

DRUGS (14)
  1. CABOMETYX [Suspect]
     Active Substance: CABOZANTINIB S-MALATE
     Indication: RENAL CANCER
     Dosage: 40 MG, QD
     Route: 048
  2. COLCRYS [Concomitant]
     Active Substance: COLCHICINE
  3. GALANTAMINE. [Concomitant]
     Active Substance: GALANTAMINE
  4. HYDROMET [Concomitant]
     Active Substance: HOMATROPINE METHYLBROMIDE\HYDROCODONE BITARTRATE
  5. OMEPRAZOLE. [Concomitant]
     Active Substance: OMEPRAZOLE
  6. KEFEI [Concomitant]
  7. HYDRALAZINE [Concomitant]
     Active Substance: HYDRALAZINE HYDROCHLORIDE
  8. LASIX [Concomitant]
     Active Substance: FUROSEMIDE
  9. TERAZOSIN [Concomitant]
     Active Substance: TERAZOSIN\TERAZOSIN HYDROCHLORIDE
  10. LEVAQUIN [Concomitant]
     Active Substance: LEVOFLOXACIN
  11. METHIMAZOLE. [Concomitant]
     Active Substance: METHIMAZOLE
  12. AMIODARONE [Concomitant]
     Active Substance: AMIODARONE
  13. INLYTA [Concomitant]
     Active Substance: AXITINIB
  14. ALLOPURINOL. [Concomitant]
     Active Substance: ALLOPURINOL

REACTIONS (1)
  - Lower respiratory tract infection [Unknown]

NARRATIVE: CASE EVENT DATE: 20171228
